FAERS Safety Report 23064226 (Version 2)
Quarter: 2023Q4

REPORT INFORMATION
  Report Type: Other
  Country: PL (occurrence: PL)
  Receive Date: 20231013
  Receipt Date: 20231208
  Transmission Date: 20240110
  Serious: Yes (Hospitalization, Other)
  Sender: FDA-Public Use
  Company Number: PL-CELLTRION HEALTHCARE HUNGARY KFT-2023PL014868

PATIENT
  Age: 75 Year
  Sex: Male
  Weight: 71 kg

DRUGS (6)
  1. BENDAMUSTINE [Suspect]
     Active Substance: BENDAMUSTINE
     Indication: Chronic lymphocytic leukaemia
     Dosage: 70 MG/M2, CYCLICAL
     Route: 065
     Dates: start: 20221214
  2. BENDAMUSTINE [Suspect]
     Active Substance: BENDAMUSTINE
     Indication: B-cell small lymphocytic lymphoma
  3. PIRTOBRUTINIB [Suspect]
     Active Substance: PIRTOBRUTINIB
     Indication: Chronic lymphocytic leukaemia
     Dosage: 200 MG, TWICE A DAY
     Route: 065
     Dates: start: 20230705
  4. PIRTOBRUTINIB [Suspect]
     Active Substance: PIRTOBRUTINIB
     Indication: Lymphocytic lymphoma
  5. RITUXIMAB [Suspect]
     Active Substance: RITUXIMAB
     Indication: B-cell small lymphocytic lymphoma
     Dosage: 500 MG/M2, CYCLIC
     Route: 042
     Dates: start: 20230111
  6. RITUXIMAB [Suspect]
     Active Substance: RITUXIMAB
     Indication: Chronic lymphocytic leukaemia
     Dosage: 375 MG/M2, CYCLIC
     Route: 042
     Dates: start: 20221214

REACTIONS (3)
  - Anaemia [Recovered/Resolved]
  - Disease progression [Unknown]
  - Clostridium difficile infection [Not Recovered/Not Resolved]

NARRATIVE: CASE EVENT DATE: 20230430
